FAERS Safety Report 4609783-9 (Version None)
Quarter: 2005Q1

REPORT INFORMATION
  Report Type: 
  Country: None (occurrence: None)
  Receive Date: 20050314
  Receipt Date: 20050309
  Transmission Date: 20050727
  Serious: Yes (Other)
  Sender: FDA-Public Use
  Company Number: THQ2005A00264

PATIENT
  Age: 68 Year
  Sex: Female

DRUGS (6)
  1. ZOTON CAPSULES (LANSOPRAZOLE) (CAPSULES) [Suspect]
     Indication: DYSPEPSIA
     Dosage: 1 CAP. (1 CAP., 1 IN 1 D)
     Route: 048
     Dates: start: 20040808, end: 20040810
  2. CHLORPHENIRAMINE (CHLORPHENIRAMINE) [Concomitant]
  3. PREDNISOLONE [Concomitant]
  4. LEVOTHYROXINE SODIUM [Concomitant]
  5. SULFASALAZINE [Concomitant]
  6. CO-FLUAMPICIL (MAGNAPEN) [Concomitant]

REACTIONS (1)
  - VASCULITIS [None]
